FAERS Safety Report 16011559 (Version 1)
Quarter: 2019Q1

REPORT INFORMATION
  Report Type: Spontaneous
  Country: US (occurrence: US)
  Receive Date: 20190227
  Receipt Date: 20190227
  Transmission Date: 20190418
  Serious: No
  Sender: FDA-Public Use
  Company Number: US-PFIZER INC-2019080148

PATIENT
  Age: 60 Year
  Sex: Female
  Weight: 82.55 kg

DRUGS (8)
  1. PREDNISONE. [Concomitant]
     Active Substance: PREDNISONE
     Dosage: 20 MG, 1X/DAY( 2 TABLETS ONCE DAILY FOR 1 WEEK)
     Route: 048
  2. XELJANZ [Suspect]
     Active Substance: TOFACITINIB CITRATE
     Indication: NEURODERMATITIS
     Dosage: 10 MG, 2X/DAY
     Route: 048
     Dates: start: 20190213
  3. PREDNISONE. [Concomitant]
     Active Substance: PREDNISONE
     Indication: ARTHRITIS
     Dosage: 20 MG, DAILY (2 TABLETS DAILY, HAS 3 MORE DAYS OF 2 TABLETS DAY)
  4. PREDNISONE. [Concomitant]
     Active Substance: PREDNISONE
     Dosage: 10 MG, 1X/DAY ( 1 TABLET ONCE DAILY FOR 1 WEEK)
     Route: 048
  5. PREDNISONE. [Concomitant]
     Active Substance: PREDNISONE
     Dosage: 40 MG, 1X/DAY ( 4 TABLETS ONCE DAILY FOR 1 WEEK)
     Route: 048
  6. PREDNISONE. [Concomitant]
     Active Substance: PREDNISONE
     Dosage: 60 MG, 1X/DAY (6 TABLETS ONCE DAILY BY MOUTH FOR 1 WEEK)
     Route: 048
  7. CEPHALEXIN [CEFALEXIN] [Concomitant]
     Active Substance: CEPHALEXIN
     Indication: ARTHRITIS
     Dosage: 500 MG, 3X/DAY
  8. FAMOTIDINE. [Concomitant]
     Active Substance: FAMOTIDINE
     Indication: REFLUX LARYNGITIS
     Dosage: 40 MG, 1X/DAY [ONCE IN THE EVENING]

REACTIONS (2)
  - Headache [Unknown]
  - Somnolence [Not Recovered/Not Resolved]

NARRATIVE: CASE EVENT DATE: 20190213
